FAERS Safety Report 16997842 (Version 1)
Quarter: 2019Q4

REPORT INFORMATION
  Report Type: Spontaneous
  Country: US (occurrence: US)
  Receive Date: 20191105
  Receipt Date: 20191105
  Transmission Date: 20200122
  Serious: No
  Sender: FDA-Public Use
  Company Number: US-RADIUS HEALTH INC.-2019US003110

PATIENT
  Sex: Female

DRUGS (1)
  1. TYMLOS [Suspect]
     Active Substance: ABALOPARATIDE
     Indication: OSTEOPOROSIS POSTMENOPAUSAL
     Dosage: 80MCG,QD
     Route: 058

REACTIONS (5)
  - Wrong technique in product usage process [Recovered/Resolved]
  - Product storage error [Recovered/Resolved]
  - Visual impairment [Recovered/Resolved]
  - Rhinitis allergic [Not Recovered/Not Resolved]
  - Product dose omission [Not Recovered/Not Resolved]
